FAERS Safety Report 8891308 (Version 1)
Quarter: 2012Q4

REPORT INFORMATION
  Report Type: 
  Country: US (occurrence: US)
  Receive Date: 20121107
  Receipt Date: 20121107
  Transmission Date: 20130627
  Serious: No
  Sender: FDA-Public Use
  Company Number: US-B.I. PHARMACEUTICALS,INC./RIDGEFIELD-2012-BP-27024BP

PATIENT
  Age: 81 Year
  Sex: Male

DRUGS (1)
  1. AGGRENOX [Suspect]
     Route: 048

REACTIONS (1)
  - Dermatitis allergic [Recovered/Resolved]
